FAERS Safety Report 6128140-X (Version None)
Quarter: 2009Q1

REPORT INFORMATION
  Report Type: 
  Country: None (occurrence: None)
  Receive Date: 20090323
  Receipt Date: 20090312
  Transmission Date: 20090719
  Serious: Yes (Other)
  Sender: FDA-Public Use
  Company Number: US-ROCHE-621467

PATIENT
  Age: 50 Year
  Sex: Male

DRUGS (1)
  1. FUZEON [Suspect]
     Route: 065
     Dates: start: 20080101

REACTIONS (1)
  - TYPE 1 DIABETES MELLITUS [None]
